FAERS Safety Report 8216536-1 (Version None)
Quarter: 2012Q1

REPORT INFORMATION
  Report Type: 
  Country: None (occurrence: None)
  Receive Date: 20120316
  Receipt Date: 20120315
  Transmission Date: 20120608
  Serious: Yes (Hospitalization, Other)
  Sender: FDA-Public Use
  Company Number: US-PFIZER INC-2012068976

PATIENT
  Sex: Female
  Weight: 61.224 kg

DRUGS (4)
  1. SYNTHROID [Concomitant]
     Indication: HYPOTHYROIDISM
     Dosage: UNK
  2. NEXIUM [Concomitant]
     Indication: GASTROOESOPHAGEAL REFLUX DISEASE
     Dosage: UNK
  3. CHANTIX [Suspect]
     Dosage: 1 MG, 2X/DAY
     Route: 048
     Dates: start: 20120201
  4. CHANTIX [Suspect]
     Indication: SMOKING CESSATION THERAPY
     Dosage: 0.5 MG, 1X/DAY
     Route: 048
     Dates: start: 20120220, end: 20120201

REACTIONS (14)
  - DECREASED APPETITE [None]
  - APHAGIA [None]
  - RHINORRHOEA [None]
  - DYSPNOEA [None]
  - NIGHTMARE [None]
  - WEIGHT DECREASED [None]
  - FEELING ABNORMAL [None]
  - VISUAL IMPAIRMENT [None]
  - AGEUSIA [None]
  - FATIGUE [None]
  - HEADACHE [None]
  - BRONCHITIS [None]
  - PYREXIA [None]
  - DIZZINESS [None]
